FAERS Safety Report 7125762-4 (Version None)
Quarter: 2010Q4

REPORT INFORMATION
  Report Type: 
  Country: None (occurrence: None)
  Receive Date: 20101129
  Receipt Date: 20101118
  Transmission Date: 20110411
  Serious: Yes (Life-Threatening, Hospitalization)
  Sender: FDA-Public Use
  Company Number: B0685072A

PATIENT
  Sex: Female
  Weight: 48 kg

DRUGS (14)
  1. ZOPHREN [Suspect]
     Dosage: 4MG PER DAY
     Route: 042
     Dates: start: 20101104, end: 20101106
  2. APROVEL [Concomitant]
     Dosage: 75MG PER DAY
     Dates: end: 20101104
  3. SIMVASTATIN [Concomitant]
     Dosage: 200MG PER DAY
  4. HYDROXYZINE [Concomitant]
     Indication: PREMEDICATION
     Dosage: 75MG SINGLE DOSE
     Route: 048
     Dates: start: 20101104, end: 20101104
  5. CEFAZOLIN [Concomitant]
     Indication: ANTIBIOTIC PROPHYLAXIS
     Dosage: 2G SINGLE DOSE
     Dates: start: 20101104, end: 20101104
  6. PROPOFOL [Concomitant]
     Dosage: 150MG PER DAY
     Route: 042
     Dates: start: 20101104, end: 20101104
  7. SUFENTANYL [Concomitant]
     Dosage: 15MCG SINGLE DOSE
     Dates: start: 20101104, end: 20101104
  8. ROCURONIUM BROMIDE [Concomitant]
     Dosage: 30MG SINGLE DOSE
     Dates: start: 20101104, end: 20101104
  9. KETAMINE [Concomitant]
     Dosage: 15MG SINGLE DOSE
     Dates: start: 20101104, end: 20101104
  10. NEFOPAM [Concomitant]
     Dates: start: 20101104
  11. PARACETAMOL [Concomitant]
     Dates: start: 20101104
  12. KETOPROFEN [Concomitant]
     Dates: start: 20101104
  13. ACUPAN [Concomitant]
     Dosage: 20MG SINGLE DOSE
     Route: 042
     Dates: start: 20101104, end: 20101104
  14. DROPERIDOL [Concomitant]
     Indication: NAUSEA
     Route: 042
     Dates: start: 20101104, end: 20101104

REACTIONS (9)
  - CARDIAC ARREST [None]
  - CHEST PAIN [None]
  - CONVULSION [None]
  - HYPOTENSION [None]
  - PAINFUL RESPIRATION [None]
  - PLEURAL EFFUSION [None]
  - PNEUMOPERITONEUM [None]
  - TORSADE DE POINTES [None]
  - VENTRICULAR FIBRILLATION [None]
